FAERS Safety Report 17711684 (Version 1)
Quarter: 2020Q2

REPORT INFORMATION
  Report Type: Spontaneous
  Country: US (occurrence: US)
  Receive Date: 20200427
  Receipt Date: 20200427
  Transmission Date: 20200714
  Serious: Yes (Other)
  Sender: FDA-Public Use
  Company Number: US-PFIZER INC-2020161646

PATIENT
  Age: 90 Year
  Sex: Female

DRUGS (1)
  1. ESTRING [Suspect]
     Active Substance: ESTRADIOL
     Indication: VULVOVAGINAL DRYNESS
     Dosage: UNK

REACTIONS (5)
  - Abdominal pain [Unknown]
  - Incorrect product administration duration [Unknown]
  - Pulmonary fibrosis [Unknown]
  - Pulmonary radiation injury [Unknown]
  - Musculoskeletal disorder [Unknown]
